FAERS Safety Report 24672832 (Version 1)
Quarter: 2024Q4

REPORT INFORMATION
  Report Type: Spontaneous
  Country: JP (occurrence: JP)
  Receive Date: 20241128
  Receipt Date: 20241128
  Transmission Date: 20250115
  Serious: Yes (Death)
  Sender: BRISTOL-MYERS SQUIBB COMPANY
  Company Number: JP-BRISTOL-MYERS SQUIBB COMPANY-2024-182840

PATIENT

DRUGS (2)
  1. REVLIMID [Suspect]
     Active Substance: LENALIDOMIDE
     Indication: Plasma cell myeloma
     Dosage: 3 ON AND 1 OFF MOST RECENTLY
     Route: 048
     Dates: start: 2023, end: 2024
  2. LENADEX [Suspect]
     Active Substance: DEXAMETHASONE ACETATE
     Indication: Plasma cell myeloma
     Dosage: 3 ON AND 1 OFF
     Dates: start: 2023, end: 2024

REACTIONS (1)
  - Illness [Fatal]

NARRATIVE: CASE EVENT DATE: 20240101
